FAERS Safety Report 5709050-6 (Version None)
Quarter: 2008Q2

REPORT INFORMATION
  Report Type: 
  Country: None (occurrence: None)
  Receive Date: 20080416
  Receipt Date: 20080416
  Transmission Date: 20081010
  Serious: Yes (Other)
  Sender: FDA-Public Use
  Company Number: None

PATIENT
  Age: 32 Year
  Sex: Female
  Weight: 125.6464 kg

DRUGS (2)
  1. FLUOXETINE [Suspect]
     Indication: BIPOLAR DISORDER
     Dosage: 60 MG ONCE A DAY PO
     Route: 048
     Dates: start: 20071201, end: 20080401
  2. FLUOXETINE [Suspect]
     Indication: SCHIZOAFFECTIVE DISORDER
     Dosage: 60 MG ONCE A DAY PO
     Route: 048
     Dates: start: 20071201, end: 20080401

REACTIONS (5)
  - CRYING [None]
  - DEPRESSION [None]
  - FATIGUE [None]
  - PHARMACEUTICAL PRODUCT COMPLAINT [None]
  - SOMNOLENCE [None]
